FAERS Safety Report 25431050 (Version 2)
Quarter: 2025Q3

REPORT INFORMATION
  Report Type: Spontaneous
  Country: GB (occurrence: GB)
  Receive Date: 20250612
  Receipt Date: 20250708
  Transmission Date: 20251021
  Serious: Yes (Disabling, Other)
  Sender: AUROBINDO
  Company Number: GB-MHRA-MED-202506031717539110-LKCPS

PATIENT
  Age: 43 Year
  Sex: Male
  Weight: 80 kg

DRUGS (1)
  1. FINASTERIDE [Suspect]
     Active Substance: FINASTERIDE
     Indication: Alopecia
     Dosage: 1 DOSAGE FORM, ONCE A DAY [ONCE A NIGHT 12 PUFS]
     Route: 065
     Dates: start: 20250404, end: 20250414

REACTIONS (4)
  - Insomnia [Not Recovered/Not Resolved]
  - Amnesia [Not Recovered/Not Resolved]
  - Medication error [Unknown]
  - Brain fog [Unknown]

NARRATIVE: CASE EVENT DATE: 20250414
